FAERS Safety Report 10101950 (Version 2)
Quarter: 2014Q3

REPORT INFORMATION
  Report Type: Spontaneous
  Country: US (occurrence: None)
  Receive Date: 20140422
  Receipt Date: 20140709
  Transmission Date: 20150326
  Serious: Yes (Hospitalization)
  Sender: FDA-Public Use
  Company Number: AUR-APL-2014-04684

PATIENT
  Age: 42 Year
  Sex: Female
  Weight: 77.1 kg

DRUGS (5)
  1. NORMODYNE (LABETALOL HYDROCHLORIDE) [Concomitant]
  2. EPIPEN [Concomitant]
     Active Substance: EPINEPHRINE
  3. ULTRAM (TRAMADOL HYDROCHLORIDE) [Concomitant]
     Active Substance: TRAMADOL HYDROCHLORIDE
  4. PANTOPRAZOLE [Suspect]
     Active Substance: PANTOPRAZOLE SODIUM
     Indication: GASTROOESOPHAGEAL REFLUX DISEASE
     Route: 048
     Dates: start: 20140401, end: 20140401
  5. ALLEGRA (FEXOFENADINE HYDROCHLORIDE) [Concomitant]

REACTIONS (11)
  - Reaction to drug excipients [None]
  - Gastrooesophageal reflux disease [None]
  - Abdominal distension [None]
  - Product substitution issue [None]
  - Anaphylactic reaction [None]
  - Nausea [None]
  - Eructation [None]
  - Pain in extremity [None]
  - Peripheral swelling [None]
  - Flatulence [None]
  - Condition aggravated [None]

NARRATIVE: CASE EVENT DATE: 20140403
